FAERS Safety Report 9174953 (Version 2)
Quarter: 2013Q2

REPORT INFORMATION
  Report Type: Spontaneous
  Country: US (occurrence: US)
  Receive Date: 20130320
  Receipt Date: 20130408
  Transmission Date: 20140414
  Serious: Yes (Other)
  Sender: FDA-Public Use
  Company Number: US-GLAXOSMITHKLINE-A1016381A

PATIENT
  Sex: Male

DRUGS (2)
  1. VOTRIENT [Suspect]
     Indication: RENAL CANCER
     Dosage: 200MG UNKNOWN
     Route: 065
  2. BLOOD PRESSURE MEDICATION [Suspect]
     Indication: BLOOD PRESSURE
     Route: 065

REACTIONS (7)
  - Loss of consciousness [Unknown]
  - Convulsion [Unknown]
  - Cerebral haemorrhage [Unknown]
  - Fall [Unknown]
  - Head injury [Unknown]
  - Hypoaesthesia oral [Unknown]
  - Blood pressure increased [Unknown]
